FAERS Safety Report 7794313-3 (Version None)
Quarter: 2011Q4

REPORT INFORMATION
  Report Type: 
  Country: None (occurrence: None)
  Receive Date: 20111004
  Receipt Date: 20110930
  Transmission Date: 20120403
  Serious: Yes (Death, Life-Threatening, Hospitalization, Other)
  Sender: FDA-Public Use
  Company Number: DE-BAYER-2011-080314

PATIENT
  Age: 78 Year
  Sex: Female

DRUGS (2)
  1. ULTRAVIST 150 [Suspect]
  2. ULTRAVIST 150 [Suspect]
     Indication: COMPUTERISED TOMOGRAM ABDOMEN
     Dosage: 80 ML, ONCE
     Route: 042

REACTIONS (11)
  - MYOCARDIAL INFARCTION [None]
  - CARDIAC ARREST [None]
  - ANAPHYLACTIC SHOCK [None]
  - OLIGURIA [None]
  - COUGH [None]
  - VISION BLURRED [None]
  - CARDIO-RESPIRATORY ARREST [None]
  - PULMONARY CONGESTION [None]
  - SYSTEMIC INFLAMMATORY RESPONSE SYNDROME [None]
  - ACUTE MYOCARDIAL INFARCTION [None]
  - DYSPNOEA [None]
